FAERS Safety Report 13276338 (Version 4)
Quarter: 2017Q2

REPORT INFORMATION
  Report Type: Spontaneous
  Country: FR (occurrence: FR)
  Receive Date: 20170228
  Receipt Date: 20170421
  Transmission Date: 20170830
  Serious: Yes (Other)
  Sender: FDA-Public Use
  Company Number: PHHY2017FR027650

PATIENT
  Age: 62 Year
  Sex: Female

DRUGS (1)
  1. ZYKADIA [Suspect]
     Active Substance: CERITINIB
     Indication: PRODUCT USED FOR UNKNOWN INDICATION
     Dosage: 750 MG, QD (3 DF, QD)
     Route: 065
     Dates: start: 20170203, end: 20170404

REACTIONS (20)
  - Hyperthyroidism [Unknown]
  - Gastrointestinal pain [Unknown]
  - Headache [Unknown]
  - Chest pain [Unknown]
  - Arthralgia [Unknown]
  - Decreased appetite [Unknown]
  - Pain in extremity [Unknown]
  - Abdominal pain upper [Unknown]
  - Neck pain [Unknown]
  - Hepatotoxicity [Recovering/Resolving]
  - Pericarditis [Unknown]
  - Dizziness [Unknown]
  - Vomiting [Unknown]
  - Weight decreased [Unknown]
  - Tachycardia [Unknown]
  - Bradycardia [Unknown]
  - Fall [Unknown]
  - Pericardial effusion [Unknown]
  - Nausea [Recovered/Resolved]
  - Constipation [Unknown]

NARRATIVE: CASE EVENT DATE: 20170223
